FAERS Safety Report 6280461-6 (Version None)
Quarter: 2009Q3

REPORT INFORMATION
  Report Type: 
  Country: None (occurrence: None)
  Receive Date: 20090724
  Receipt Date: 20080619
  Transmission Date: 20100115
  Serious: Yes (Hospitalization)
  Sender: FDA-Public Use
  Company Number: A0734159A

PATIENT
  Age: 54 Year
  Sex: Female

DRUGS (9)
  1. AVANDIA [Suspect]
     Route: 048
  2. GLUCOPHAGE [Concomitant]
  3. LANTUS [Concomitant]
  4. LEVAQUIN [Concomitant]
  5. OSCAL [Concomitant]
  6. METFORMIN HCL [Concomitant]
  7. CRESTOR [Concomitant]
  8. TRICOR [Concomitant]
  9. LOVAZA [Concomitant]

REACTIONS (1)
  - FRACTURE [None]
